FAERS Safety Report 4902338-8 (Version None)
Quarter: 2006Q1

REPORT INFORMATION
  Report Type: 
  Country: None (occurrence: None)
  Receive Date: 20060202
  Receipt Date: 20060120
  Transmission Date: 20060701
  Serious: Yes (Hospitalization)
  Sender: FDA-Public Use
  Company Number: 2006-01-1195

PATIENT
  Age: 75 Year
  Sex: Male

DRUGS (5)
  1. CLARITIN [Suspect]
     Dosage: ORAL
     Route: 048
     Dates: start: 20051021, end: 20051025
  2. BACTRIM [Suspect]
     Dosage: ORAL
     Route: 048
     Dates: start: 20051021, end: 20051025
  3. DIOSMIN [Concomitant]
  4. SECTRAL [Concomitant]
  5. PERMIXON [Concomitant]

REACTIONS (3)
  - INTERTRIGO [None]
  - RASH GENERALISED [None]
  - TOXIC SKIN ERUPTION [None]
